FAERS Safety Report 8043111-4 (Version None)
Quarter: 2012Q1

REPORT INFORMATION
  Report Type: 
  Country: None (occurrence: None)
  Receive Date: 20120112
  Receipt Date: 20120106
  Transmission Date: 20120608
  Serious: Yes (Hospitalization)
  Sender: FDA-Public Use
  Company Number: JP-BAYER-2012-001437

PATIENT
  Age: 72 Year
  Sex: Male

DRUGS (1)
  1. AVELOX [Suspect]
     Indication: PYREXIA
     Dosage: 400 MG, QD
     Route: 048
     Dates: start: 20111219

REACTIONS (3)
  - PNEUMONIA [None]
  - WHEEZING [None]
  - DYSPNOEA [None]
